FAERS Safety Report 9650376 (Version 2)
Quarter: 2013Q4

REPORT INFORMATION
  Report Type: Spontaneous
  Country: US (occurrence: US)
  Receive Date: 20131028
  Receipt Date: 20131028
  Transmission Date: 20140711
  Serious: No
  Sender: FDA-Public Use
  Company Number: US-PURDUE-USA-2012-0092733

PATIENT
  Age: 66 Year
  Sex: Male

DRUGS (6)
  1. OXYCONTIN (NDA 22-272) [Suspect]
     Indication: BACK PAIN
     Dosage: 40 MG, QID
     Route: 048
  2. OXYCONTIN (NDA 22-272) [Suspect]
     Dosage: 40 MG, TID
     Route: 048
  3. PRISTIQ [Concomitant]
     Indication: DEPRESSION
     Dosage: 50 MG, DAILY
     Route: 065
  4. FINASTERIDE [Concomitant]
     Indication: PROSTATOMEGALY
     Dosage: 5 MG, DAILY
     Route: 065
  5. LISINOPRIL H [Concomitant]
     Indication: HYPERTENSION
     Dosage: 20/25 MG, DAILY
     Route: 065
  6. ZETIA [Concomitant]
     Indication: BLOOD CHOLESTEROL INCREASED
     Dosage: 10 MG, DAILY
     Route: 065

REACTIONS (6)
  - Abdominal pain [Unknown]
  - Drug effect decreased [Not Recovered/Not Resolved]
  - Drug effect delayed [Unknown]
  - Inadequate analgesia [Unknown]
  - Somnolence [Unknown]
  - Medication residue present [Unknown]
